FAERS Safety Report 5518954-9 (Version None)
Quarter: 2007Q4

REPORT INFORMATION
  Report Type: 
  Country: None (occurrence: None)
  Receive Date: 20071114
  Receipt Date: 20071114
  Transmission Date: 20080405
  Serious: No
  Sender: FDA-Public Use
  Company Number: None

PATIENT
  Age: 38 Year
  Sex: Female
  Weight: 58.514 kg

DRUGS (1)
  1. LEVAQUIN [Suspect]
     Indication: SINUSITIS
     Dosage: 750 MG. 1X DAY PO
     Route: 048
     Dates: start: 20070911, end: 20070912

REACTIONS (20)
  - AGITATION [None]
  - ANOREXIA [None]
  - ARTHRALGIA [None]
  - BURNING SENSATION [None]
  - CHEST PAIN [None]
  - DEHYDRATION [None]
  - DELIRIUM [None]
  - DEPRESSION [None]
  - DIARRHOEA [None]
  - DISORIENTATION [None]
  - HEADACHE [None]
  - HYPERTENSION [None]
  - INSOMNIA [None]
  - LETHARGY [None]
  - MYALGIA [None]
  - PARANOIA [None]
  - PYREXIA [None]
  - RASH [None]
  - THIRST [None]
  - VISION BLURRED [None]
